FAERS Safety Report 13179890 (Version 1)
Quarter: 2017Q1

REPORT INFORMATION
  Report Type: Spontaneous
  Country: US (occurrence: US)
  Receive Date: 20170202
  Receipt Date: 20170202
  Transmission Date: 20170428
  Serious: No
  Sender: FDA-Public Use
  Company Number: US-TARO-2016TAR00928

PATIENT
  Age: 50 Year
  Sex: Female
  Weight: 63.49 kg

DRUGS (5)
  1. UNSPECIFIED PAIN MEDICATIONS FOR THE FIBROMYALGIA [Concomitant]
  2. UNSPECIFIED STOMACH MEDICATIONS [Concomitant]
  3. FLUOCINONIDE TOPICAL SOLUTION USP 0.05% [Suspect]
     Active Substance: FLUOCINONIDE
     Indication: DERMATITIS
     Dosage: 1 TBSP, 2X/DAY
     Route: 061
     Dates: start: 20161102, end: 20161103
  4. UNSPECIFIED MEDICATIONS FOR DEPRESSION AND ANXIETY [Concomitant]
  5. A LOT OF UNSPECIFIED MEDICATION [Concomitant]

REACTIONS (3)
  - Alopecia [Not Recovered/Not Resolved]
  - Application site pain [Not Recovered/Not Resolved]
  - Application site pruritus [Not Recovered/Not Resolved]

NARRATIVE: CASE EVENT DATE: 20161102
